FAERS Safety Report 4412547-2 (Version None)
Quarter: 2004Q2

REPORT INFORMATION
  Report Type: 
  Country: None (occurrence: None)
  Receive Date: 20040630
  Receipt Date: 20040406
  Transmission Date: 20050107
  Serious: No
  Sender: FDA-Public Use
  Company Number: 04P-163-0256059-00

PATIENT
  Age: 64 Year
  Sex: Female
  Weight: 104.3273 kg

DRUGS (12)
  1. HUMIRA [Suspect]
     Indication: RHEUMATOID ARTHRITIS
     Dosage: 40 MG, 1 IN 2 WK, SUBCUTANEOUS
     Route: 058
     Dates: start: 20030101
  2. PREDNISONE [Concomitant]
  3. LEVOTHYROXINE SODIUM [Concomitant]
  4. AMLODIPINE BESYLATE [Concomitant]
  5. MAXZIDE [Concomitant]
  6. LANSOPRAZOLE [Concomitant]
  7. CROMOLYN SODIUM [Concomitant]
  8. TRIAMCINOLONE ACETONIDE [Concomitant]
  9. CETIRIZINE HCL [Concomitant]
  10. TRIAMCINOLONE ACETONIDE [Concomitant]
  11. IPATROPIUM BROMIDE [Concomitant]
  12. ALBUTEROL SULFATE [Concomitant]

REACTIONS (1)
  - DRUG INEFFECTIVE [None]
